FAERS Safety Report 9097720 (Version 1)
Quarter: 2013Q1

REPORT INFORMATION
  Report Type: Report from Study
  Country: US (occurrence: US)
  Receive Date: 20130212
  Receipt Date: 20130212
  Transmission Date: 20140127
  Serious: Yes (Death)
  Sender: FDA-Public Use
  Company Number: US-ROCHE-1190093

PATIENT
  Age: 48 Year
  Sex: Female

DRUGS (1)
  1. XELODA [Suspect]
     Indication: NEUROENDOCRINE CARCINOMA
     Route: 065

REACTIONS (1)
  - Disease progression [Fatal]
